FAERS Safety Report 18700233 (Version 1)
Quarter: 2021Q1

REPORT INFORMATION
  Report Type: Spontaneous
  Country: US (occurrence: US)
  Receive Date: 20210105
  Receipt Date: 20210105
  Transmission Date: 20210419
  Serious: Yes (Life-Threatening, Hospitalization, Other)
  Sender: FDA-Public Use
  Company Number: US-ACCORD-213371

PATIENT
  Age: 50 Year
  Sex: Male

DRUGS (4)
  1. TACROLIMUS. [Concomitant]
     Active Substance: TACROLIMUS
     Indication: IMMUNOSUPPRESSANT DRUG THERAPY
     Dosage: 3MG QAM + 2MG QPM
  2. MYCOPHENOLIC ACID. [Suspect]
     Active Substance: MYCOPHENOLIC ACID
     Indication: IMMUNOSUPPRESSANT DRUG THERAPY
  3. TACROLIMUS. [Concomitant]
     Active Substance: TACROLIMUS
     Indication: IMMUNOSUPPRESSANT DRUG THERAPY
     Dosage: 3MG QAM + 2MG QPM
  4. PREDNISONE. [Concomitant]
     Active Substance: PREDNISONE
     Indication: IMMUNOSUPPRESSANT DRUG THERAPY
     Dosage: 10 DAILY

REACTIONS (8)
  - Shock haemorrhagic [Recovering/Resolving]
  - Angiopathy [Recovering/Resolving]
  - Ileal ulcer [Recovering/Resolving]
  - Peritonitis [Recovering/Resolving]
  - Haematochezia [Recovering/Resolving]
  - Cryptitis [Recovering/Resolving]
  - Serositis [Recovering/Resolving]
  - Enterocolitis [Recovering/Resolving]
